FAERS Safety Report 5588167-3 (Version None)
Quarter: 2008Q1

REPORT INFORMATION
  Report Type: 
  Country: None (occurrence: None)
  Receive Date: 20080109
  Receipt Date: 20080109
  Transmission Date: 20080703
  Serious: No
  Sender: FDA-Public Use
  Company Number: None

PATIENT
  Age: 60 Year
  Sex: Female
  Weight: 58.514 kg

DRUGS (2)
  1. SIMVASTATIN 20 MG. DAILY RANBAXY [Suspect]
     Indication: BLOOD CHOLESTEROL INCREASED
     Dates: start: 20071214, end: 20071225
  2. LOVASTATIN   40 MG DAILY  EON LABS [Suspect]
     Dates: start: 20010901, end: 20071201

REACTIONS (1)
  - DRUG HYPERSENSITIVITY [None]
